FAERS Safety Report 4869254-1 (Version None)
Quarter: 2005Q4

REPORT INFORMATION
  Report Type: 
  Country: None (occurrence: None)
  Receive Date: 20051230
  Receipt Date: 20051223
  Transmission Date: 20060501
  Serious: Yes (Hospitalization)
  Sender: FDA-Public Use
  Company Number: CA-AVENTIS-200521318GDDC

PATIENT
  Age: 50 Year
  Sex: Female
  Weight: 58 kg

DRUGS (4)
  1. DOCETAXEL [Suspect]
     Indication: BREAST CANCER
     Dosage: DOSE: 95 MG
     Route: 042
     Dates: start: 20051003, end: 20051201
  2. CODE UNBROKEN [Suspect]
     Indication: BREAST CANCER
     Route: 048
     Dates: start: 20051003, end: 20051201
  3. LORAZEPAM [Concomitant]
     Route: 048
     Dates: start: 20051023
  4. MULTIVITAMIN [Concomitant]
     Route: 048
     Dates: start: 20051212

REACTIONS (2)
  - LETHARGY [None]
  - PNEUMOTHORAX [None]
